FAERS Safety Report 8809090 (Version 1)
Quarter: 2012Q4

REPORT INFORMATION
  Report Type: Spontaneous
  Country: US (occurrence: None)
  Receive Date: 20120921
  Receipt Date: 20120921
  Transmission Date: 20130627
  Serious: Yes (Disabling)
  Sender: FDA-Public Use
  Company Number: None

PATIENT
  Age: 64 Year
  Sex: Female
  Weight: 72.12 kg

DRUGS (1)
  1. METOPROLOL [Suspect]
     Dates: start: 20100320, end: 20120716

REACTIONS (3)
  - Macular fibrosis [None]
  - Vision blurred [None]
  - Colour blindness [None]
